FAERS Safety Report 22624123 (Version 1)
Quarter: 2023Q2

REPORT INFORMATION
  Report Type: Spontaneous
  Country: US (occurrence: None)
  Receive Date: 20230621
  Receipt Date: 20230621
  Transmission Date: 20230721
  Serious: No
  Sender: FDA-Public Use
  Company Number: None

PATIENT
  Age: 33 Year
  Sex: Male

DRUGS (2)
  1. CANNABIDIOL [Suspect]
     Active Substance: CANNABIDIOL
  2. CANNABIDIOL [Suspect]
     Active Substance: CANNABIDIOL

REACTIONS (4)
  - Insomnia [None]
  - Anxiety [None]
  - Tremor [None]
  - Product advertising issue [None]

NARRATIVE: CASE EVENT DATE: 20230201
